FAERS Safety Report 13831477 (Version 5)
Quarter: 2018Q1

REPORT INFORMATION
  Report Type: Report from Study
  Country: US (occurrence: BR)
  Receive Date: 20170803
  Receipt Date: 20180216
  Transmission Date: 20180508
  Serious: Yes (Hospitalization, Other)
  Sender: FDA-Public Use
  Company Number: US-SUNOVION-2017SUN003393

PATIENT
  Sex: Female
  Weight: 74 kg

DRUGS (12)
  1. INDACATEROL [Suspect]
     Active Substance: INDACATEROL
     Indication: LUNG DISORDER
  2. GLYCOPYRROLATE. [Suspect]
     Active Substance: GLYCOPYRROLATE
     Indication: BRONCHITIS CHRONIC
  3. ASA [Concomitant]
     Active Substance: ASPIRIN
     Dosage: UNK
  4. CARVEDILOL. [Concomitant]
     Active Substance: CARVEDILOL
     Dosage: 50 MG, UNK
  5. INDACATEROL AND GLYCOPYRROLATE [Suspect]
     Active Substance: GLYCOPYRROLATE\INDACATEROL MALEATE
     Indication: LUNG DISORDER
     Dosage: 1 DF (GLYCOPYRRONIUM, BROMIDE 50 UG/INDACATEROL 110 UG), QD;
     Route: 055
  6. RELVAR [Concomitant]
     Active Substance: FLUTICASONE FUROATE\VILANTEROL TRIFENATATE
     Dosage: UNK
     Dates: start: 201703
  7. LOSARTAN. [Concomitant]
     Active Substance: LOSARTAN
     Dosage: 50 MG, UNK
  8. INDACATEROL [Suspect]
     Active Substance: INDACATEROL
     Indication: BRONCHITIS CHRONIC
     Dosage: 300 OT, BID
     Route: 065
  9. INDACATEROL [Suspect]
     Active Substance: INDACATEROL
     Indication: PNEUMONIA
     Dosage: 300 MG, QD
     Route: 055
     Dates: end: 201703
  10. GLYCOPYRROLATE. [Suspect]
     Active Substance: GLYCOPYRROLATE
     Indication: PULMONARY OEDEMA
     Dosage: QD (IN MORNING)
     Route: 065
  11. HIDROCLOROTIAZIDE [Concomitant]
     Active Substance: HYDROCHLOROTHIAZIDE
     Dosage: 25 MG, UNK
  12. ROSUVASTATIN. [Concomitant]
     Active Substance: ROSUVASTATIN
     Dosage: 10 MG, UNK

REACTIONS (22)
  - Bronchitis [Recovered/Resolved]
  - Productive cough [Unknown]
  - Secretion discharge [Recovered/Resolved]
  - Skin disorder [Recovering/Resolving]
  - Inappropriate schedule of drug administration [Unknown]
  - Malaise [Recovering/Resolving]
  - Chest pain [Recovered/Resolved]
  - Feeling abnormal [Recovering/Resolving]
  - Gait disturbance [Recovering/Resolving]
  - Dyspnoea [Recovering/Resolving]
  - Mite allergy [Recovering/Resolving]
  - Back pain [Recovering/Resolving]
  - Allergy to animal [Recovering/Resolving]
  - Hypersensitivity [Unknown]
  - Mouth breathing [Unknown]
  - Bronchitis [Recovering/Resolving]
  - Product use in unapproved indication [Unknown]
  - Wrong technique in product usage process [Unknown]
  - Blood glucose increased [Recovering/Resolving]
  - Pulmonary oedema [Unknown]
  - Cough [Recovering/Resolving]
  - Sensitivity to weather change [Unknown]
